FAERS Safety Report 6228361-1 (Version None)
Quarter: 2009Q2

REPORT INFORMATION
  Report Type: 
  Country: None (occurrence: None)
  Receive Date: 20090610
  Receipt Date: 20090610
  Transmission Date: 20091009
  Serious: Yes (Hospitalization)
  Sender: FDA-Public Use
  Company Number: None

PATIENT
  Sex: Female
  Weight: 47.7 kg

DRUGS (2)
  1. CISPLATIN [Suspect]
     Dosage: 110 MG
     Dates: start: 20090522, end: 20090522
  2. GEMCITABINE [Suspect]
     Dosage: 3480 MG
     Dates: end: 20090529

REACTIONS (1)
  - THROMBOPHLEBITIS SUPERFICIAL [None]
